FAERS Safety Report 11456107 (Version 1)
Quarter: 2015Q3

REPORT INFORMATION
  Report Type: Spontaneous
  Country: US (occurrence: US)
  Receive Date: 20150903
  Receipt Date: 20150903
  Transmission Date: 20151125
  Serious: No
  Sender: FDA-Public Use
  Company Number: US-APOTEX-2015AP009088

PATIENT

DRUGS (1)
  1. VALPROIC ACID ORAL SOLUTION USP [Suspect]
     Active Substance: VALPROIC ACID
     Indication: EPILEPSY
     Route: 065

REACTIONS (1)
  - Weight increased [Unknown]
